FAERS Safety Report 20825949 (Version 1)
Quarter: 2022Q2

REPORT INFORMATION
  Report Type: Other
  Country: US (occurrence: None)
  Receive Date: 20220513
  Receipt Date: 20220513
  Transmission Date: 20220721
  Serious: Yes (Hospitalization)
  Sender: FDA-Public Use
  Company Number: US-ROCHE-3092100

PATIENT
  Sex: Male
  Weight: 113.50 kg

DRUGS (6)
  1. OCREVUS [Suspect]
     Active Substance: OCRELIZUMAB
     Indication: Relapsing-remitting multiple sclerosis
     Dosage: YES
     Route: 042
  2. VOLTAREN [Concomitant]
     Active Substance: DICLOFENAC SODIUM
  3. EMGALITY [Concomitant]
     Active Substance: GALCANEZUMAB-GNLM
  4. TIZANIDINE [Concomitant]
     Active Substance: TIZANIDINE
  5. AMBIEN [Concomitant]
     Active Substance: ZOLPIDEM TARTRATE
  6. ALBUTEROL [Concomitant]
     Active Substance: ALBUTEROL

REACTIONS (6)
  - Cytokine release syndrome [Recovered/Resolved with Sequelae]
  - Fall [Unknown]
  - Muscular weakness [Recovered/Resolved with Sequelae]
  - Dysstasia [Recovered/Resolved with Sequelae]
  - Therapeutic response decreased [Unknown]
  - Immobile [Not Recovered/Not Resolved]
